FAERS Safety Report 15735001 (Version 3)
Quarter: 2019Q1

REPORT INFORMATION
  Report Type: Spontaneous
  Country: BE (occurrence: BE)
  Receive Date: 20181218
  Receipt Date: 20190110
  Transmission Date: 20190417
  Serious: Yes (Hospitalization)
  Sender: FDA-Public Use
  Company Number: BE-JNJFOC-20181215173

PATIENT
  Age: 74 Year
  Sex: Male

DRUGS (10)
  1. CRESTOR [Interacting]
     Active Substance: ROSUVASTATIN CALCIUM
     Indication: HYPERCHOLESTEROLAEMIA
     Route: 048
  2. ZYTIGA [Suspect]
     Active Substance: ABIRATERONE ACETATE
     Indication: ADENOCARCINOMA
     Route: 048
     Dates: start: 20181003, end: 2018
  3. PREDNISON [Concomitant]
     Active Substance: PREDNISONE
     Indication: METASTASES TO BONE
     Route: 048
     Dates: start: 20181003
  4. SELOZOK [Concomitant]
     Active Substance: METOPROLOL SUCCINATE
     Route: 065
  5. PANTOPRAZOLE [Concomitant]
     Active Substance: PANTOPRAZOLE
     Route: 048
  6. ZYTIGA [Suspect]
     Active Substance: ABIRATERONE ACETATE
     Indication: METASTASES TO BONE
     Route: 048
     Dates: start: 20181003, end: 2018
  7. PREDNISON [Concomitant]
     Active Substance: PREDNISONE
     Indication: ADENOCARCINOMA
     Route: 048
     Dates: start: 20181003
  8. FIRMAGON [Concomitant]
     Active Substance: DEGARELIX ACETATE
     Route: 065
  9. FORZATEN/HCT [Concomitant]
     Route: 048
  10. CARDIOASPIRINE [Concomitant]
     Active Substance: ASPIRIN
     Route: 048

REACTIONS (5)
  - Myalgia [Unknown]
  - Rhabdomyolysis [Unknown]
  - Acute kidney injury [Unknown]
  - Drug interaction [Unknown]
  - Hypokalaemia [Unknown]

NARRATIVE: CASE EVENT DATE: 2018
